FAERS Safety Report 6524376-4 (Version None)
Quarter: 2010Q1

REPORT INFORMATION
  Report Type: 
  Country: None (occurrence: None)
  Receive Date: 20100101
  Receipt Date: 20091223
  Transmission Date: 20100710
  Serious: Yes (Hospitalization, Other)
  Sender: FDA-Public Use
  Company Number: US-BIOGENIDEC-2009BI035908

PATIENT
  Age: 80 Year
  Sex: Female

DRUGS (1)
  1. AVONEX [Suspect]
     Indication: MULTIPLE SCLEROSIS
     Route: 030
     Dates: start: 20010309, end: 20090423

REACTIONS (6)
  - ASTHENIA [None]
  - COMPRESSION FRACTURE [None]
  - DRUG INEFFECTIVE [None]
  - FALL [None]
  - SEPSIS [None]
  - TRANSIENT ISCHAEMIC ATTACK [None]
